FAERS Safety Report 4754317-1 (Version None)
Quarter: 2005Q3

REPORT INFORMATION
  Report Type: 
  Country: None (occurrence: None)
  Receive Date: 20050825
  Receipt Date: 20050817
  Transmission Date: 20060218
  Serious: Yes (Congenital Anomaly)
  Sender: FDA-Public Use
  Company Number: 2004-12-0593

PATIENT
  Age: 4 Day
  Weight: 2.5 kg

DRUGS (2)
  1. REBETOL [Suspect]
     Dosage: 800 MG ORAL
     Route: 048
     Dates: start: 20040201, end: 20040601
  2. PEG-INTERFERON INJECTABLE [Suspect]
     Dosage: 180 MCG QWK SUBCUTANEOUS
     Route: 058
     Dates: start: 20040201, end: 20040601

REACTIONS (5)
  - HYDROCELE [None]
  - JAUNDICE NEONATAL [None]
  - PLACENTAL DISORDER [None]
  - TRANSMISSION OF DRUG VIA SEMEN [None]
  - VOMITING PROJECTILE [None]
